FAERS Safety Report 19826514 (Version 1)
Quarter: 2021Q3

REPORT INFORMATION
  Report Type: Spontaneous
  Country: ES (occurrence: ES)
  Receive Date: 20210914
  Receipt Date: 20210914
  Transmission Date: 20211014
  Serious: Yes (Hospitalization)
  Sender: FDA-Public Use
  Company Number: ES-ROCHE-2907074

PATIENT
  Age: 75 Year
  Sex: Female
  Weight: 90 kg

DRUGS (3)
  1. METOCLOPRAMIDA [Suspect]
     Active Substance: METOCLOPRAMIDE HYDROCHLORIDE
     Indication: NAUSEA
     Route: 042
     Dates: start: 20210804, end: 20210804
  2. DOGMATIL [Concomitant]
     Active Substance: SULPIRIDE
     Indication: VERTIGO
     Route: 030
     Dates: start: 20210804, end: 20210804
  3. DIAZEPAM. [Suspect]
     Active Substance: DIAZEPAM
     Indication: PRODUCT USED FOR UNKNOWN INDICATION
     Route: 065
     Dates: start: 20210804, end: 20210804

REACTIONS (2)
  - Atrial fibrillation [Recovered/Resolved]
  - Respiratory arrest [Recovered/Resolved]

NARRATIVE: CASE EVENT DATE: 20210804
